FAERS Safety Report 9660492 (Version 2)
Quarter: 2014Q1

REPORT INFORMATION
  Report Type: Spontaneous
  Country: IE (occurrence: IE)
  Receive Date: 20131031
  Receipt Date: 20140328
  Transmission Date: 20141002
  Serious: Yes (Death, Other)
  Sender: FDA-Public Use
  Company Number: IE-009507513-1310IRL010298

PATIENT
  Age: 33 Year
  Sex: Female
  Weight: 67 kg

DRUGS (3)
  1. MERCILON [Suspect]
     Indication: CONTRACEPTION
     Dosage: UNK
     Route: 048
     Dates: start: 20010430
  2. ARCOXIA 90 MG FILM-COATED TABLETS [Concomitant]
     Dosage: 90 MG, ONCE A DAY (OD)
  3. KLACID (CLARITHROMYCIN LACTOBIONATE) [Concomitant]
     Indication: LOWER RESPIRATORY TRACT INFECTION
     Dosage: 500 MG, ONCE A DAY (OD)

REACTIONS (1)
  - Pulmonary embolism [Fatal]
